FAERS Safety Report 24126300 (Version 1)
Quarter: 2024Q3

REPORT INFORMATION
  Report Type: Spontaneous
  Country: US (occurrence: US)
  Receive Date: 20240723
  Receipt Date: 20240723
  Transmission Date: 20241017
  Serious: Yes (Life-Threatening, Hospitalization)
  Sender: MYLAN
  Company Number: US-MYLANLABS-2024M1067585

PATIENT
  Age: 56 Year
  Sex: Male

DRUGS (7)
  1. HEPARIN [Suspect]
     Active Substance: HEPARIN SODIUM
     Indication: Anticoagulant therapy
     Dosage: UNK; 400 U/KG (A TOTAL OF 26,000U)
     Route: 042
  2. SUFENTANIL [Concomitant]
     Active Substance: SUFENTANIL
     Indication: General anaesthesia
     Dosage: UNK
     Route: 042
  3. LIDOCAINE [Concomitant]
     Active Substance: LIDOCAINE
     Indication: General anaesthesia
     Dosage: UNK
     Route: 042
  4. PROPOFOL [Concomitant]
     Active Substance: PROPOFOL
     Indication: General anaesthesia
     Dosage: UNK
     Route: 042
  5. ROCURONIUM [Concomitant]
     Active Substance: ROCURONIUM BROMIDE
     Indication: Hypotonia
     Dosage: UNK
     Route: 065
  6. SEVOFLURANE [Concomitant]
     Active Substance: SEVOFLURANE
     Indication: Maintenance of anaesthesia
     Dosage: UNK
     Route: 065
  7. ISOFLURANE [Concomitant]
     Active Substance: ISOFLURANE
     Indication: Maintenance of anaesthesia
     Dosage: UNK
     Route: 065

REACTIONS (1)
  - Hyperkalaemia [Recovered/Resolved]
